FAERS Safety Report 14403542 (Version 1)
Quarter: 2018Q1

REPORT INFORMATION
  Report Type: Spontaneous
  Country: US (occurrence: US)
  Receive Date: 20180116
  Receipt Date: 20180116
  Transmission Date: 20180509
  Serious: Yes (Hospitalization)
  Sender: FDA-Public Use
  Company Number: None

PATIENT
  Age: 57 Year
  Sex: Female

DRUGS (14)
  1. PANTOPRAZOLE [Concomitant]
     Active Substance: PANTOPRAZOLE
  2. FOLIC ACID. [Concomitant]
     Active Substance: FOLIC ACID
  3. METOLAZONE. [Concomitant]
     Active Substance: METOLAZONE
  4. ZOLPIDEM [Concomitant]
     Active Substance: ZOLPIDEM\ZOLPIDEM TARTRATE
  5. DIPHENYDRAM [Concomitant]
  6. FLOVENT HFA [Concomitant]
     Active Substance: FLUTICASONE PROPIONATE
  7. POT CL [Concomitant]
  8. GABAPENTIN. [Concomitant]
     Active Substance: GABAPENTIN
  9. PRAMIPEXOLE. [Concomitant]
     Active Substance: PRAMIPEXOLE
  10. AMLODIPINE [Suspect]
     Active Substance: AMLODIPINE BESYLATE
  11. BACLOFEN. [Concomitant]
     Active Substance: BACLOFEN
  12. SILDENAFIL 20MG TAB [Suspect]
     Active Substance: SILDENAFIL
     Indication: PULMONARY ARTERIAL HYPERTENSION
     Route: 048
     Dates: start: 20171114
  13. TRAZODONE [Concomitant]
     Active Substance: TRAZODONE HYDROCHLORIDE
  14. TORSEMIDE. [Concomitant]
     Active Substance: TORSEMIDE

REACTIONS (3)
  - Condition aggravated [None]
  - Pulmonary arterial hypertension [None]
  - Drug dose omission [None]

NARRATIVE: CASE EVENT DATE: 20180112
